FAERS Safety Report 21213709 (Version 2)
Quarter: 2022Q4

REPORT INFORMATION
  Report Type: Spontaneous
  Country: US (occurrence: US)
  Receive Date: 20220816
  Receipt Date: 20221028
  Transmission Date: 20230113
  Serious: Yes (Other)
  Sender: FDA-Public Use
  Company Number: US-CELGENE-163-21880-14074678

PATIENT
  Sex: Female

DRUGS (3)
  1. REVLIMID [Suspect]
     Active Substance: LENALIDOMIDE
     Indication: Product used for unknown indication
     Dosage: 25 MILLIGRAM, FREQUENCY: 14DAYS  CONSECUTIVE DAYS
     Route: 050
     Dates: start: 201402, end: 201405
  2. VELCADE [Concomitant]
     Active Substance: BORTEZOMIB
     Indication: Product used for unknown indication
     Route: 050
     Dates: end: 20140519
  3. VELCADE [Concomitant]
     Active Substance: BORTEZOMIB
     Route: 050
     Dates: end: 20140604

REACTIONS (1)
  - Exposure via body fluid [Unknown]
